FAERS Safety Report 23503909 (Version 2)
Quarter: 2024Q1

REPORT INFORMATION
  Report Type: Report from Study
  Country: JP (occurrence: JP)
  Receive Date: 20240209
  Receipt Date: 20240320
  Transmission Date: 20240410
  Serious: Yes (Hospitalization)
  Sender: FDA-Public Use
  Company Number: JP-ABBVIE-5422514

PATIENT
  Sex: Female

DRUGS (2)
  1. CARBIDOPA\LEVODOPA [Suspect]
     Active Substance: CARBIDOPA\LEVODOPA
     Indication: Parkinson^s disease
     Route: 050
  2. CARBIDOPA\LEVODOPA [Suspect]
     Active Substance: CARBIDOPA\LEVODOPA
     Route: 050

REACTIONS (10)
  - Stoma site discharge [Unknown]
  - Mobility decreased [Unknown]
  - Posture abnormal [Unknown]
  - Device breakage [Unknown]
  - Device occlusion [Unknown]
  - Stoma site hypergranulation [Unknown]
  - Vomiting [Unknown]
  - Stoma site ulcer [Unknown]
  - Weight decreased [Unknown]
  - Stoma site reaction [Unknown]
